FAERS Safety Report 8899902 (Version 3)
Quarter: 2014Q1

REPORT INFORMATION
  Report Type: Report from Study
  Country: NL (occurrence: NL)
  Receive Date: 20121109
  Receipt Date: 20140109
  Transmission Date: 20141002
  Serious: Yes (Other)
  Sender: FDA-Public Use
  Company Number: PHHY2012NL102249

PATIENT
  Age: 65 Year
  Sex: Male

DRUGS (8)
  1. ZOMETA [Suspect]
     Indication: PROSTATE CANCER METASTATIC
     Dosage: 4 MG/100 ML, ONCE PER 28 DAYS
     Route: 042
  2. ZOMETA [Suspect]
     Dosage: 4 MG/100 ML, ONCE PER 28 DAYS
     Route: 042
     Dates: start: 20121011
  3. ZOMETA [Suspect]
     Dosage: 4 MG/100 ML, ONCE PER 28 DAYS
     Route: 042
     Dates: start: 20121106
  4. ZOMETA [Suspect]
     Dosage: 4 MG/100 ML, ONCE PER 28 DAYS
     Route: 042
     Dates: start: 20130524
  5. ZOMETA [Suspect]
     Dosage: 4 MG/100 ML, ONCE PER 28 DAYS
     Route: 042
     Dates: start: 20130621
  6. ZOMETA [Suspect]
     Dosage: 4 MG/100 ML, ONCE PER 28 DAYS
     Route: 042
     Dates: start: 20131210
  7. ZOMETA [Suspect]
     Dosage: 4 MG/100 ML, ONCE PER 28 DAYS
     Route: 042
     Dates: start: 20140107
  8. ZYTIGA [Concomitant]
     Dosage: 250 MG, UNK

REACTIONS (4)
  - Hernia [Unknown]
  - Metastases to pelvis [Unknown]
  - Pain in extremity [Unknown]
  - Myalgia [Recovered/Resolved]
